FAERS Safety Report 5703551-2 (Version None)
Quarter: 2008Q2

REPORT INFORMATION
  Report Type: 
  Country: None (occurrence: None)
  Receive Date: 20080409
  Receipt Date: 20080326
  Transmission Date: 20081010
  Serious: Yes (Hospitalization, Other)
  Sender: FDA-Public Use
  Company Number: 2008PV000017

PATIENT
  Age: 72 Year
  Sex: Female

DRUGS (1)
  1. DEPODUR [Suspect]
     Indication: PROCEDURAL PAIN
     Dosage: 7.5 MG; 1X;  ED
     Route: 008

REACTIONS (3)
  - ASPIRATION [None]
  - OBSTRUCTIVE AIRWAYS DISORDER [None]
  - RESPIRATORY DEPRESSION [None]
